FAERS Safety Report 22085649 (Version 1)
Quarter: 2023Q1

REPORT INFORMATION
  Report Type: Spontaneous
  Country: US (occurrence: US)
  Receive Date: 20230310
  Receipt Date: 20230310
  Transmission Date: 20230418
  Serious: No
  Sender: FDA-Public Use
  Company Number: US-SANOFI-01523343

PATIENT
  Age: 68 Year
  Sex: Male

DRUGS (1)
  1. FLOMAX [Suspect]
     Active Substance: TAMSULOSIN HYDROCHLORIDE
     Indication: Benign prostatic hyperplasia
     Dosage: 0.4 MG HS

REACTIONS (4)
  - Hypotension [Unknown]
  - Orthostatic hypotension [Unknown]
  - Dizziness [Unknown]
  - Dizziness [Unknown]
